FAERS Safety Report 15451906 (Version 3)
Quarter: 2018Q4

REPORT INFORMATION
  Report Type: Spontaneous
  Country: US (occurrence: US)
  Receive Date: 20181001
  Receipt Date: 20181112
  Transmission Date: 20190204
  Serious: No
  Sender: FDA-Public Use
  Company Number: US-GLAXOSMITHKLINE-US2018174608

PATIENT
  Age: 73 Year
  Sex: Female

DRUGS (1)
  1. VENTOLIN HFA [Suspect]
     Active Substance: ALBUTEROL SULFATE
     Indication: PRODUCT USED FOR UNKNOWN INDICATION
     Dosage: 2 PUFF(S), PRN
     Route: 055
     Dates: start: 20180924

REACTIONS (4)
  - Throat irritation [Unknown]
  - Oral discomfort [Unknown]
  - Tongue discomfort [Unknown]
  - Product complaint [Unknown]

NARRATIVE: CASE EVENT DATE: 20180924
